FAERS Safety Report 21991159 (Version 1)
Quarter: 2023Q1

REPORT INFORMATION
  Report Type: Report from Study
  Country: AT (occurrence: AT)
  Receive Date: 20230214
  Receipt Date: 20230214
  Transmission Date: 20230417
  Serious: Yes (Hospitalization)
  Sender: FDA-Public Use
  Company Number: AT-ROCHE-2183778

PATIENT
  Age: 52 Year
  Sex: Female
  Weight: 95.9 kg

DRUGS (15)
  1. TRASTUZUMAB [Suspect]
     Active Substance: TRASTUZUMAB
     Indication: HER2 positive breast cancer
     Dosage: 288 MILLIGRAM,4 WEEKS, RECENT DOSE PRIOR AE13/AUG/
     Route: 042
     Dates: start: 20180813, end: 20180813
  2. TRASTUZUMAB [Suspect]
     Active Substance: TRASTUZUMAB
     Indication: Breast cancer metastatic
  3. DOCETAXEL [Suspect]
     Active Substance: DOCETAXEL
     Indication: HER2 positive breast cancer
     Dosage: 154 MILLIGRAM, Q3W,MOST RECENT DOSE PRIOR TO AE 30/APR/2018
     Route: 042
     Dates: start: 20180115, end: 20180430
  4. DOCETAXEL [Suspect]
     Active Substance: DOCETAXEL
     Indication: Breast cancer metastatic
  5. TRASTUZUMAB [Suspect]
     Active Substance: TRASTUZUMAB
     Indication: HER2 positive breast cancer
     Dosage: 760 MILLIGRAM, Q3W,RECENT DOSE PRIOR AE16/JUL/2018
     Route: 042
     Dates: start: 20180115, end: 20180716
  6. TRASTUZUMAB [Suspect]
     Active Substance: TRASTUZUMAB
     Indication: Breast cancer metastatic
  7. PERTUZUMAB [Suspect]
     Active Substance: PERTUZUMAB
     Indication: Breast cancer metastatic
     Dosage: 840 MILLIGRAM, Q3WRECENT DOSE PRIOR AE 25/JUN/2018
     Route: 042
     Dates: start: 20180115, end: 20180725
  8. PERTUZUMAB [Suspect]
     Active Substance: PERTUZUMAB
     Indication: HER2 positive breast cancer
  9. Novalgin [Concomitant]
     Dosage: UNK,ONGOING = NOT CHECKED
     Route: 065
     Dates: start: 20210815
  10. HALCION [Concomitant]
     Active Substance: TRIAZOLAM
     Dosage: UNK,ONGOING = NOT CHECKED
     Route: 065
     Dates: start: 20180911
  11. ACETAMINOPHEN [Concomitant]
     Active Substance: ACETAMINOPHEN
     Dosage: UNK
     Route: 065
  12. ESCITALOPRAM [Concomitant]
     Active Substance: ESCITALOPRAM OXALATE
     Dosage: UNK
     Route: 065
  13. LEVOTHYROXINE SODIUM [Concomitant]
     Active Substance: LEVOTHYROXINE SODIUM
     Dosage: UNK,ONGOING = NOT CHECKED
     Route: 065
     Dates: start: 20210815
  14. PANTOPRAZOLE SODIUM [Concomitant]
     Active Substance: PANTOPRAZOLE SODIUM
     Dosage: UNK,ONGOING = NOT CHECKED
     Route: 065
     Dates: start: 20210815
  15. MORPHINE [Concomitant]
     Active Substance: MORPHINE
     Dosage: UNK
     Route: 065
     Dates: start: 20180815

REACTIONS (3)
  - Chest pain [Not Recovered/Not Resolved]
  - Abdominal pain [Not Recovered/Not Resolved]
  - Nausea [Recovered/Resolved]

NARRATIVE: CASE EVENT DATE: 20180716
